FAERS Safety Report 20615680 (Version 1)
Quarter: 2022Q1

REPORT INFORMATION
  Report Type: Spontaneous
  Country: US (occurrence: US)
  Receive Date: 20220321
  Receipt Date: 20220321
  Transmission Date: 20220423
  Serious: Yes (Death, Life-Threatening, Other)
  Sender: FDA-Public Use
  Company Number: US-AMGEN-USASP2022047182

PATIENT

DRUGS (3)
  1. FILGRASTIM [Suspect]
     Active Substance: FILGRASTIM
     Indication: Prophylaxis
     Dosage: UNK UNK, QD (TOTAL OF 5 TO 7 DAYS, BEGINNING ON DAY 3 OR 4 OF EACH CYCLE)
     Route: 058
  2. FILANESIB [Suspect]
     Active Substance: FILANESIB
     Indication: Plasma cell myeloma
     Dosage: UNK (1-HOUR INTRAVENOUS (IV) INFUSION ON DAYS 1 AND 2 IN 14-DAY CYCLES)
     Route: 042
  3. FILANESIB [Suspect]
     Active Substance: FILANESIB
     Indication: Plasma cell leukaemia

REACTIONS (46)
  - Death [Fatal]
  - Plasma cell myeloma [Fatal]
  - Neutropenia [Unknown]
  - Hypokalaemia [Unknown]
  - Febrile neutropenia [Unknown]
  - Toxic epidermal necrolysis [Unknown]
  - Fatigue [Unknown]
  - Anaemia [Unknown]
  - Thrombocytopenia [Unknown]
  - Pneumonia [Unknown]
  - Septic shock [Unknown]
  - Neuropathy peripheral [Unknown]
  - Corneal epithelium defect [Unknown]
  - Vision blurred [Unknown]
  - Bacteraemia [Unknown]
  - Punctate keratitis [Unknown]
  - Arthritis bacterial [Unknown]
  - Cardiac failure congestive [Unknown]
  - Acute kidney injury [Unknown]
  - Leukopenia [Unknown]
  - Atrial fibrillation [Unknown]
  - Mucosal inflammation [Unknown]
  - Acute respiratory distress syndrome [Unknown]
  - Back pain [Unknown]
  - Upper respiratory tract infection [Unknown]
  - Oedema peripheral [Unknown]
  - Sepsis [Unknown]
  - Decreased appetite [Unknown]
  - Arthralgia [Unknown]
  - Pyrexia [Unknown]
  - Diarrhoea [Unknown]
  - Nausea [Unknown]
  - Insomnia [Unknown]
  - Lipase increased [Unknown]
  - Corneal disorder [Unknown]
  - Amylase increased [Unknown]
  - Hypercalcaemia [Unknown]
  - Dehydration [Unknown]
  - Hypervolaemia [Unknown]
  - Blister [Unknown]
  - Constipation [Unknown]
  - Cough [Unknown]
  - Headache [Unknown]
  - Alopecia [Unknown]
  - Vomiting [Unknown]
  - Dyspnoea [Unknown]
